FAERS Safety Report 18735524 (Version 1)
Quarter: 2021Q1

REPORT INFORMATION
  Report Type: Spontaneous
  Country: DE (occurrence: DE)
  Receive Date: 20210113
  Receipt Date: 20210113
  Transmission Date: 20210419
  Serious: Yes (Other)
  Sender: FDA-Public Use
  Company Number: DE-ASTRAZENECA-2021A003927

PATIENT
  Age: 67 Year
  Sex: Female

DRUGS (1)
  1. CRESTOR [Suspect]
     Active Substance: ROSUVASTATIN CALCIUM
     Route: 048

REACTIONS (5)
  - Comminuted fracture [Unknown]
  - Pelvic fracture [Unknown]
  - Tendon rupture [Unknown]
  - Articular calcification [Unknown]
  - Muscle strain [Unknown]
